FAERS Safety Report 7399548-X (Version None)
Quarter: 2011Q2

REPORT INFORMATION
  Report Type: 
  Country: None (occurrence: None)
  Receive Date: 20110407
  Receipt Date: 20110215
  Transmission Date: 20111010
  Serious: Yes (Other)
  Sender: FDA-Public Use
  Company Number: US-BAYER-201030474NA

PATIENT
  Sex: Female
  Weight: 104.31 kg

DRUGS (5)
  1. UNCODEABLE ^UNCLASSIFIABLE^ [Concomitant]
     Indication: PRODUCT USED FOR UNKNOWN INDICATION
     Route: 048
  2. UNCODEABLE ^UNCLASSIFIABLE^ [Concomitant]
     Dosage: UNK
     Route: 048
  3. YASMIN [Suspect]
     Indication: MENOMETRORRHAGIA
  4. CYMBALTA [Concomitant]
     Indication: PRODUCT USED FOR UNKNOWN INDICATION
     Dosage: UNK
     Route: 048
  5. UNCODEABLE ^UNCLASSIFIABLE^ [Concomitant]
     Dosage: 5/500 MG
     Route: 048

REACTIONS (3)
  - CHOLECYSTITIS ACUTE [None]
  - CHOLECYSTECTOMY [None]
  - CHOLELITHIASIS [None]
